FAERS Safety Report 18219283 (Version 6)
Quarter: 2021Q2

REPORT INFORMATION
  Report Type: Report from Study
  Country: US (occurrence: US)
  Receive Date: 20200901
  Receipt Date: 20210506
  Transmission Date: 20210717
  Serious: No
  Sender: FDA-Public Use
  Company Number: NVSC2020US240150

PATIENT
  Age: 68 Year
  Sex: Male

DRUGS (3)
  1. WATER PILLS [Concomitant]
     Active Substance: UNSPECIFIED INGREDIENT
     Indication: PRODUCT USED FOR UNKNOWN INDICATION
     Dosage: UNK,  (EVERY MORNING ON FOR YEARS)
     Route: 065
  2. ENTRESTO [Suspect]
     Active Substance: SACUBITRIL\VALSARTAN
     Indication: PRODUCT USED FOR UNKNOWN INDICATION
     Dosage: UNK UNK, BID
     Route: 048
     Dates: start: 20200818
  3. POTASSIUM [Concomitant]
     Active Substance: POTASSIUM
     Indication: PRODUCT USED FOR UNKNOWN INDICATION
     Dosage: UNK (EVERY MORNING HAS BEEN ON FOR YEARS)
     Route: 065

REACTIONS (13)
  - Photopsia [Unknown]
  - Dyspnoea [Unknown]
  - Depression [Recovering/Resolving]
  - Overweight [Unknown]
  - Dizziness [Recovered/Resolved]
  - Incorrect dose administered [Unknown]
  - Wrong technique in product usage process [Unknown]
  - Weight increased [Unknown]
  - Photophobia [Unknown]
  - Thinking abnormal [Unknown]
  - Visual impairment [Recovered/Resolved]
  - Chest pain [Unknown]
  - Product prescribing error [Unknown]

NARRATIVE: CASE EVENT DATE: 20200818
